FAERS Safety Report 10928591 (Version 2)
Quarter: 2015Q2

REPORT INFORMATION
  Report Type: Spontaneous
  Country: US (occurrence: US)
  Receive Date: 20150319
  Receipt Date: 20150524
  Transmission Date: 20150821
  Serious: No
  Sender: FDA-Public Use
  Company Number: US-JNJFOC-20130313049

PATIENT
  Age: 8 Year
  Sex: Male

DRUGS (3)
  1. TRILEPTAL [Concomitant]
     Active Substance: OXCARBAZEPINE
     Indication: BIPOLAR DISORDER
     Route: 065
     Dates: start: 20111007, end: 201203
  2. METHYLPHENIDATE [Suspect]
     Active Substance: METHYLPHENIDATE
     Indication: ATTENTION DEFICIT/HYPERACTIVITY DISORDER
     Route: 048
     Dates: start: 20111115
  3. METHYLPHENIDATE [Suspect]
     Active Substance: METHYLPHENIDATE
     Indication: ATTENTION DEFICIT/HYPERACTIVITY DISORDER
     Route: 048
     Dates: start: 20111115

REACTIONS (4)
  - Weight gain poor [Not Recovered/Not Resolved]
  - Social avoidant behaviour [Recovered/Resolved]
  - Feeling abnormal [Recovered/Resolved]
  - Insomnia [Not Recovered/Not Resolved]

NARRATIVE: CASE EVENT DATE: 20111115
